FAERS Safety Report 16715244 (Version 2)
Quarter: 2019Q3

REPORT INFORMATION
  Report Type: Spontaneous
  Country: US (occurrence: US)
  Receive Date: 20190819
  Receipt Date: 20190920
  Transmission Date: 20191005
  Serious: No
  Sender: FDA-Public Use
  Company Number: US-PFIZER INC-2019351142

PATIENT
  Age: 59 Year
  Sex: Female
  Weight: 101.13 kg

DRUGS (11)
  1. LYRICA [Suspect]
     Active Substance: PREGABALIN
     Indication: NEURALGIA
  2. VIT. D3 + CORAL CALCIUM [Concomitant]
     Dosage: UNK (1.25 MCG 50000 UNIT. ONE A WEEK)
  3. VITAMIN B12 [COBAMAMIDE] [Concomitant]
     Dosage: 3000 UG, 1X/DAY
  4. LYRICA [Suspect]
     Active Substance: PREGABALIN
     Indication: FIBROMYALGIA
     Dosage: 75 MG, 2X/DAY
     Dates: start: 2018
  5. CELEBREX [Suspect]
     Active Substance: CELECOXIB
     Indication: PAIN
  6. CELEBREX [Suspect]
     Active Substance: CELECOXIB
     Indication: ARTHRITIS
  7. TYLENOL [Concomitant]
     Active Substance: ACETAMINOPHEN
     Dosage: UNK
  8. LYRICA [Suspect]
     Active Substance: PREGABALIN
     Indication: NERVE INJURY
  9. CELEBREX [Suspect]
     Active Substance: CELECOXIB
     Indication: FIBROMYALGIA
     Dosage: 200 MG, 2X/DAY
  10. AMITRIPTYLINE HCL [Concomitant]
     Active Substance: AMITRIPTYLINE
     Dosage: 10 MG, 1X/DAY (ONE EVERY EVENING)
  11. LYRICA [Suspect]
     Active Substance: PREGABALIN
     Indication: ARTHRITIS

REACTIONS (1)
  - Feeling abnormal [Recovered/Resolved]
